FAERS Safety Report 8879916 (Version 1)
Quarter: 2012Q4

REPORT INFORMATION
  Report Type: 
  Country: ZA (occurrence: ZA)
  Receive Date: 20121031
  Receipt Date: 20121031
  Transmission Date: 20130627
  Serious: Yes (Hospitalization)
  Sender: FDA-Public Use
  Company Number: ZA-ABBOTT-12P-143-1001601-00

PATIENT
  Age: 44 Year
  Sex: Female

DRUGS (3)
  1. EPILIM [Suspect]
     Indication: LIMB DISCOMFORT
     Dosage: Daily
     Route: 048
     Dates: start: 20120824
  2. LANTUS [Concomitant]
     Indication: PRODUCT USED FOR UNKNOWN INDICATION
     Dates: start: 201112
  3. APIDRA [Concomitant]
     Indication: PRODUCT USED FOR UNKNOWN INDICATION
     Dates: start: 201112

REACTIONS (1)
  - Off label use [Unknown]
